FAERS Safety Report 4393178-X (Version None)
Quarter: 2004Q3

REPORT INFORMATION
  Report Type: 
  Country: None (occurrence: None)
  Receive Date: 20040702
  Receipt Date: 20040628
  Transmission Date: 20050211
  Serious: Yes (Hospitalization)
  Sender: FDA-Public Use
  Company Number: 2004-06-1979

PATIENT
  Age: 68 Year
  Sex: Female

DRUGS (3)
  1. FLUITRAN TABLETS ^LIKE NAQUA^ [Suspect]
     Indication: HYPERTENSION
     Dosage: ORAL
     Route: 048
     Dates: end: 20040101
  2. CONIEL (BENIDIPINE HCL) ORAL, NOT OTHERWISE SPECIFIED [Suspect]
     Indication: HYPERTENSION
     Dosage: 4 MG DAILY ORAL
     Route: 048
  3. BLOPRESS (CANDESARTAN CILEXETIL) ORAL, NOT OTHERWISE SPECIFIED [Suspect]
     Indication: HYPERTENSION
     Dosage: 4 MG DAILY ORAL
     Route: 048

REACTIONS (1)
  - INTERSTITIAL LUNG DISEASE [None]
